FAERS Safety Report 5118568-9 (Version None)
Quarter: 2006Q3

REPORT INFORMATION
  Report Type: 
  Country: None (occurrence: None)
  Receive Date: 20060927
  Receipt Date: 20060920
  Transmission Date: 20061208
  Serious: Yes (Life-Threatening, Other)
  Sender: FDA-Public Use
  Company Number: DE-2006-018955

PATIENT
  Age: 47 Year
  Sex: Female

DRUGS (1)
  1. MAGNEVIST [Suspect]
     Indication: NUCLEAR MAGNETIC RESONANCE IMAGING
     Dosage: UNK, 1 DOSE, INTRAVENOUS
     Route: 042
     Dates: start: 20060505, end: 20060505

REACTIONS (4)
  - ANAPHYLACTIC SHOCK [None]
  - CARDIOVASCULAR INSUFFICIENCY [None]
  - RESPIRATORY ARREST [None]
  - SKIN TEST POSITIVE [None]
